FAERS Safety Report 14130381 (Version 2)
Quarter: 2018Q1

REPORT INFORMATION
  Report Type: Report from Study
  Country: US (occurrence: US)
  Receive Date: 20171026
  Receipt Date: 20180123
  Transmission Date: 20180508
  Serious: No
  Sender: FDA-Public Use
  Company Number: US-AMGEN-USASL2017146226

PATIENT
  Age: 66 Year
  Sex: Male

DRUGS (3)
  1. NIACIN. [Concomitant]
     Active Substance: NIACIN
     Dosage: UNK
  2. REPATHA [Suspect]
     Active Substance: EVOLOCUMAB
     Indication: TYPE IIA HYPERLIPIDAEMIA
     Dosage: 140 MG, Q2WK
     Route: 065
  3. CRESTOR [Concomitant]
     Active Substance: ROSUVASTATIN CALCIUM
     Dosage: (DOSE DECREASED)

REACTIONS (1)
  - Blood cholesterol decreased [Unknown]
